FAERS Safety Report 11104406 (Version 1)
Quarter: 2015Q2

REPORT INFORMATION
  Report Type: Spontaneous
  Country: FR (occurrence: FR)
  Receive Date: 20150511
  Receipt Date: 20150511
  Transmission Date: 20150821
  Serious: Yes (Hospitalization)
  Sender: FDA-Public Use
  Company Number: FR-PFIZER INC-2015152984

PATIENT
  Age: 58 Year
  Sex: Female

DRUGS (9)
  1. TYGACIL [Suspect]
     Active Substance: TIGECYCLINE
     Dosage: 50 MG, 2X/DAY
     Route: 041
     Dates: start: 20131128, end: 20140114
  2. SOLUPRED /00016201/ [Concomitant]
     Active Substance: PREDNISOLONE
     Dosage: 10 MG, 1X/DAY
  3. KEPPRA [Concomitant]
     Active Substance: LEVETIRACETAM
     Dosage: 500 MG, 2X/DAY
  4. DIFFU-K [Concomitant]
     Active Substance: POTASSIUM CHLORIDE
     Dosage: UNK
  5. ZYVOXID [Suspect]
     Active Substance: LINEZOLID
     Dosage: 600 MG, 2X/DAY
     Route: 048
     Dates: start: 20131128, end: 20140114
  6. EUPANTOL [Concomitant]
     Active Substance: PANTOPRAZOLE SODIUM
     Dosage: UNK
  7. PARACETAMOL [Concomitant]
     Active Substance: ACETAMINOPHEN
     Dosage: AS NECESSARY
  8. POLARAMINE [Concomitant]
     Active Substance: DEXCHLORPHENIRAMINE MALEATE
     Dosage: 2 MG, 3X/DAY
  9. ATARAX [Concomitant]
     Active Substance: HYDROXYZINE\HYDROXYZINE HYDROCHLORIDE
     Dosage: 50 MG, 3X/DAY

REACTIONS (2)
  - Hyperbilirubinaemia [Recovered/Resolved]
  - Pancytopenia [Recovered/Resolved]

NARRATIVE: CASE EVENT DATE: 20140114
